FAERS Safety Report 9279985 (Version 2)
Quarter: 2013Q3

REPORT INFORMATION
  Report Type: Report from Study
  Country: JP (occurrence: JP)
  Receive Date: 20130509
  Receipt Date: 20130712
  Transmission Date: 20140515
  Serious: Yes (Other)
  Sender: FDA-Public Use
  Company Number: JP-ROCHE-1221525

PATIENT
  Age: 77 Year
  Sex: Male

DRUGS (2)
  1. RANIBIZUMAB [Suspect]
     Indication: POLYPOIDAL CHOROIDAL VASCULOPATHY
     Route: 050
  2. RANIBIZUMAB [Suspect]
     Indication: OFF LABEL USE

REACTIONS (5)
  - Detachment of retinal pigment epithelium [Unknown]
  - Retinal detachment [Unknown]
  - Choroidal neovascularisation [Recovered/Resolved]
  - Chorioretinal disorder [Recovered/Resolved]
  - Nodule [Recovered/Resolved]
